APPROVED DRUG PRODUCT: OXYCODONE HYDROCHLORIDE
Active Ingredient: OXYCODONE HYDROCHLORIDE
Strength: 5MG/5ML
Dosage Form/Route: SOLUTION;ORAL
Application: A206914 | Product #001 | TE Code: AA
Applicant: PHARMACEUTICAL ASSOCIATES INC
Approved: Feb 1, 2019 | RLD: No | RS: No | Type: RX